FAERS Safety Report 6972927-8 (Version None)
Quarter: 2010Q3

REPORT INFORMATION
  Report Type: 
  Country: None (occurrence: None)
  Receive Date: 20100909
  Receipt Date: 20100524
  Transmission Date: 20110219
  Serious: No
  Sender: FDA-Public Use
  Company Number: US-KINGPHARMUSA00001-K201000674

PATIENT
  Age: 63 Year
  Sex: Female

DRUGS (5)
  1. EMBEDA [Suspect]
     Indication: INTERVERTEBRAL DISC PROTRUSION
     Dosage: 20 MG, BID
     Dates: start: 20100521, end: 20100523
  2. EMBEDA [Suspect]
     Indication: BACK PAIN
  3. EMBEDA [Suspect]
  4. FENTANYL CITRATE [Concomitant]
     Dosage: 25 MCG, Q3D
     Route: 062
  5. VITAMINS [Concomitant]

REACTIONS (4)
  - OLIGURIA [None]
  - PRURITUS [None]
  - RASH GENERALISED [None]
  - RASH PRURITIC [None]
